FAERS Safety Report 8654572 (Version 5)
Quarter: 2013Q4

REPORT INFORMATION
  Report Type: Spontaneous
  Country: US (occurrence: US)
  Receive Date: 20120619
  Receipt Date: 20131101
  Transmission Date: 20140711
  Serious: Yes (Hospitalization)
  Sender: FDA-Public Use
  Company Number: US-009507513-2012SP031889

PATIENT
  Age: 52 Year
  Sex: Female

DRUGS (8)
  1. PEGINTRON [Suspect]
     Indication: HEPATITIS C
     Dosage: 120 MICROGRAMS, QW
     Dates: start: 201205
  2. REBETOL [Suspect]
     Indication: HEPATITIS C
  3. LISINOPRIL [Concomitant]
  4. SYNTHROID [Concomitant]
  5. PAXIL [Concomitant]
  6. TRANXENE [Concomitant]
  7. ONDANSETRON [Concomitant]
  8. EFFEXOR [Concomitant]

REACTIONS (5)
  - Syncope [Recovering/Resolving]
  - Dyspnoea [Recovering/Resolving]
  - Blood pressure decreased [Recovering/Resolving]
  - Asthenia [Recovering/Resolving]
  - Wrong technique in drug usage process [Unknown]
